FAERS Safety Report 4902432-1 (Version None)
Quarter: 2006Q1

REPORT INFORMATION
  Report Type: 
  Country: None (occurrence: None)
  Receive Date: 20060202
  Receipt Date: 20060117
  Transmission Date: 20060701
  Serious: Yes (Hospitalization)
  Sender: FDA-Public Use
  Company Number: 2006BI001746

PATIENT

DRUGS (3)
  1. ZEVALIN [Suspect]
     Indication: NON-HODGKIN'S LYMPHOMA
     Dosage: 0.4 MCI/KG; 1X; IV
     Route: 042
     Dates: start: 20040506, end: 20040506
  2. RITUXIMAB [Concomitant]
  3. RITUXIMAB [Concomitant]

REACTIONS (1)
  - OSTEOCHONDROSIS [None]
